FAERS Safety Report 9363161 (Version 2)
Quarter: 2013Q4

REPORT INFORMATION
  Report Type: Report from Study
  Country: DE (occurrence: DE)
  Receive Date: 20130624
  Receipt Date: 20131224
  Transmission Date: 20140711
  Serious: Yes (Hospitalization)
  Sender: FDA-Public Use
  Company Number: DE-BIOGENIDEC-2013BI054838

PATIENT
  Age: 47 Year
  Sex: Female
  Weight: 53 kg

DRUGS (3)
  1. BG00012 [Suspect]
     Indication: MULTIPLE SCLEROSIS
     Dates: start: 20101018
  2. VESIKUR [Concomitant]
     Indication: BLADDER DYSFUNCTION
     Route: 048
     Dates: start: 20121201
  3. TECFIDERA [Concomitant]

REACTIONS (1)
  - Multiple sclerosis [Recovered/Resolved]
